FAERS Safety Report 5508204-1 (Version None)
Quarter: 2007Q4

REPORT INFORMATION
  Report Type: 
  Country: None (occurrence: None)
  Receive Date: 20071106
  Receipt Date: 20071025
  Transmission Date: 20080405
  Serious: Yes (Other)
  Sender: FDA-Public Use
  Company Number: US-PFIZER INC-2007090449

PATIENT
  Sex: Female
  Weight: 49.09 kg

DRUGS (1)
  1. ZITHROMAX [Suspect]
     Indication: PNEUMONIA

REACTIONS (4)
  - HYPERSENSITIVITY [None]
  - LIP DISCOLOURATION [None]
  - SPEECH DISORDER [None]
  - TONGUE DISORDER [None]
